FAERS Safety Report 18766443 (Version 1)
Quarter: 2021Q1

REPORT INFORMATION
  Report Type: Spontaneous
  Country: US (occurrence: US)
  Receive Date: 20210121
  Receipt Date: 20210121
  Transmission Date: 20210419
  Serious: Yes (Death)
  Sender: FDA-Public Use
  Company Number: US-SPECGX-T202002742

PATIENT
  Age: 64 Year
  Sex: Female

DRUGS (6)
  1. DAPSONE. [Suspect]
     Active Substance: DAPSONE
     Indication: PRODUCT USED FOR UNKNOWN INDICATION
     Dosage: UNK
     Route: 048
  2. FENTANYL CITRATE. [Suspect]
     Active Substance: FENTANYL CITRATE
     Dosage: UNK
     Route: 051
  3. DAPSONE. [Suspect]
     Active Substance: DAPSONE
     Dosage: UNK
     Route: 051
  4. PRIMAQUINE [Suspect]
     Active Substance: PRIMAQUINE PHOSPHATE
     Indication: PRODUCT USED FOR UNKNOWN INDICATION
     Dosage: UNK
     Route: 048
  5. FENTANYL CITRATE. [Suspect]
     Active Substance: FENTANYL CITRATE
     Indication: PRODUCT USED FOR UNKNOWN INDICATION
     Dosage: UNK
     Route: 048
  6. PRIMAQUINE [Suspect]
     Active Substance: PRIMAQUINE PHOSPHATE
     Dosage: UNK
     Route: 051

REACTIONS (2)
  - Incorrect route of product administration [Fatal]
  - Death [Fatal]

NARRATIVE: CASE EVENT DATE: 2019
